FAERS Safety Report 6282629-1 (Version None)
Quarter: 2009Q3

REPORT INFORMATION
  Report Type: 
  Country: None (occurrence: None)
  Receive Date: 20090724
  Receipt Date: 20090714
  Transmission Date: 20100115
  Serious: Yes (Hospitalization, Other)
  Sender: FDA-Public Use
  Company Number: PHEH2008US04551

PATIENT
  Sex: Male

DRUGS (10)
  1. ZOMETA [Suspect]
     Indication: BONE DENSITY DECREASED
     Dosage: 4 MG, QMO
  2. THALIDOMIDE [Concomitant]
     Route: 048
  3. DILANTIN                                /AUS/ [Concomitant]
     Indication: CONVULSION
     Dosage: 400 MG, QD
  4. DECADRON [Concomitant]
     Dosage: 4 MG, QID
     Route: 048
  5. ROXANOL [Concomitant]
     Dosage: 0.5 TO 2 ML EVERY 2 TO 3 HOURS, PRN
     Route: 048
  6. COLACE [Concomitant]
     Dosage: 100 MG, BID
     Route: 048
  7. DULCOLAX [Concomitant]
     Dosage: 10 MG, PRN
     Route: 054
  8. MILK OF MAGNESIA TAB [Concomitant]
     Dosage: 30 ML, PRN
     Route: 048
  9. AMBIEN [Concomitant]
     Dosage: 10 MG, PRN
  10. M.V.I. [Concomitant]

REACTIONS (37)
  - ANAEMIA [None]
  - ANHEDONIA [None]
  - ANXIETY [None]
  - BACK PAIN [None]
  - BONE DISORDER [None]
  - CARDIAC FAILURE CONGESTIVE [None]
  - CARDIOMEGALY [None]
  - CENTRAL NERVOUS SYSTEM LESION [None]
  - CONSTIPATION [None]
  - CONVULSION [None]
  - DECREASED APPETITE [None]
  - DISABILITY [None]
  - DYSKINESIA [None]
  - GINGIVAL ULCERATION [None]
  - HAEMATOCRIT DECREASED [None]
  - HEADACHE [None]
  - HYPOAESTHESIA [None]
  - INJURY [None]
  - LOOSE TOOTH [None]
  - MASTICATION DISORDER [None]
  - METASTASES TO BONE [None]
  - METASTASES TO CENTRAL NERVOUS SYSTEM [None]
  - METASTASES TO LIVER [None]
  - METASTASES TO SPINE [None]
  - MOUTH ULCERATION [None]
  - NEPHRECTOMY [None]
  - OSTEOMYELITIS [None]
  - OSTEONECROSIS [None]
  - PAIN [None]
  - PAIN IN JAW [None]
  - PEYRONIE'S DISEASE [None]
  - PLEURAL EFFUSION [None]
  - RENAL CANCER METASTATIC [None]
  - SINUS DISORDER [None]
  - SPINAL COMPRESSION FRACTURE [None]
  - SPINAL CORD COMPRESSION [None]
  - VERTEBROPLASTY [None]
